FAERS Safety Report 18363135 (Version 2)
Quarter: 2020Q4

REPORT INFORMATION
  Report Type: Spontaneous
  Country: SV (occurrence: SV)
  Receive Date: 20201008
  Receipt Date: 20201126
  Transmission Date: 20210114
  Serious: Yes (Death, Hospitalization, Other)
  Sender: FDA-Public Use
  Company Number: NVSC2020SV271637

PATIENT
  Age: 21 Year
  Sex: Male
  Weight: 64 kg

DRUGS (1)
  1. GLIVEC [Suspect]
     Active Substance: IMATINIB MESYLATE
     Indication: CHRONIC MYELOID LEUKAEMIA
     Dosage: 400 MG
     Route: 048
     Dates: start: 20191029, end: 20200208

REACTIONS (13)
  - Febrile neutropenia [Unknown]
  - Haemoglobin decreased [Unknown]
  - Central nervous system leukaemia [Unknown]
  - Infarction [Fatal]
  - COVID-19 pneumonia [Unknown]
  - Neutrophil count abnormal [Unknown]
  - Headache [Unknown]
  - Chronic myeloid leukaemia transformation [Unknown]
  - White blood cell count increased [Unknown]
  - Blood lactate dehydrogenase increased [Unknown]
  - Pneumonia [Unknown]
  - Lymphoblast count increased [Unknown]
  - Platelet count decreased [Unknown]

NARRATIVE: CASE EVENT DATE: 20200208
